FAERS Safety Report 17573031 (Version 2)
Quarter: 2020Q1

REPORT INFORMATION
  Report Type: Spontaneous
  Country: US (occurrence: US)
  Receive Date: 20200323
  Receipt Date: 20200323
  Transmission Date: 20200409
  Serious: No
  Sender: FDA-Public Use
  Company Number: US-ELI_LILLY_AND_COMPANY-US202003008531

PATIENT
  Sex: Male

DRUGS (3)
  1. HUMULIN R U-500 [Suspect]
     Active Substance: INSULIN HUMAN
     Indication: TYPE 2 DIABETES MELLITUS
     Dosage: 95 U, EACH MORNING
     Route: 058
     Dates: start: 2017
  2. HUMULIN R U-500 [Suspect]
     Active Substance: INSULIN HUMAN
     Dosage: 10 U, DAILY (AT LUNCH)
     Route: 058
     Dates: start: 2017
  3. HUMULIN R U-500 [Suspect]
     Active Substance: INSULIN HUMAN
     Dosage: 90 U, DAILY AT BEDTIME
     Route: 058
     Dates: start: 2017

REACTIONS (2)
  - Injection site bruising [Unknown]
  - Product dose omission [Unknown]
